FAERS Safety Report 21009505 (Version 1)
Quarter: 2022Q2

REPORT INFORMATION
  Report Type: Report from Study
  Country: US (occurrence: US)
  Receive Date: 20220627
  Receipt Date: 20220627
  Transmission Date: 20220721
  Serious: Yes (Hospitalization, Other)
  Sender: FDA-Public Use
  Company Number: US-BRISTOL-MYERS SQUIBB COMPANY-2022-057514

PATIENT
  Age: 62 Year
  Sex: Male
  Weight: 95.254 kg

DRUGS (1)
  1. REVLIMID [Suspect]
     Active Substance: LENALIDOMIDE
     Indication: Plasma cell myeloma
     Dosage: FOR 21 DAYS, 7 DAYS OFF
     Route: 048
     Dates: start: 20200307

REACTIONS (2)
  - Fall [Unknown]
  - Staphylococcal infection [Recovering/Resolving]
